FAERS Safety Report 10906646 (Version 1)
Quarter: 2015Q1

REPORT INFORMATION
  Report Type: Spontaneous
  Country: US (occurrence: None)
  Receive Date: 20150309
  Receipt Date: 20150309
  Transmission Date: 20150721
  Serious: Yes (Life-Threatening, Disabling, Other)
  Sender: FDA-Public Use
  Company Number: None

PATIENT
  Age: 48 Year
  Sex: Male
  Weight: 79.38 kg

DRUGS (2)
  1. MULTI VITAMIN [Concomitant]
     Active Substance: VITAMINS
  2. SUBOXONE [Suspect]
     Active Substance: BUPRENORPHINE HYDROCHLORIDE\NALOXONE HYDROCHLORIDE
     Indication: PAIN
     Dosage: 2 X 8MG FILM PER DAY
     Route: 048
     Dates: start: 20130301, end: 20150306

REACTIONS (6)
  - Lethargy [None]
  - Diarrhoea [None]
  - Suicidal ideation [None]
  - Apparent death [None]
  - Impaired self-care [None]
  - Temperature regulation disorder [None]

NARRATIVE: CASE EVENT DATE: 20150211
